FAERS Safety Report 4326560-7 (Version None)
Quarter: 2004Q1

REPORT INFORMATION
  Report Type: 
  Country: None (occurrence: None)
  Receive Date: 20040330
  Receipt Date: 20040316
  Transmission Date: 20041129
  Serious: Yes (Death)
  Sender: FDA-Public Use
  Company Number: PHEH2004US03116

PATIENT
  Age: 50 Year
  Sex: Female
  Weight: 103 kg

DRUGS (1)
  1. FEMARA [Suspect]
     Indication: BREAST CANCER
     Dosage: 2.5 MG, QD
     Route: 048
     Dates: start: 20031101, end: 20040223

REACTIONS (1)
  - CEREBROVASCULAR ACCIDENT [None]
